FAERS Safety Report 23579760 (Version 3)
Quarter: 2025Q3

REPORT INFORMATION
  Report Type: Spontaneous
  Country: EU (occurrence: EU)
  Receive Date: 20240229
  Receipt Date: 20250917
  Transmission Date: 20251020
  Serious: Yes (Death, Other)
  Sender: GLAXOSMITHKLINE
  Company Number: None

PATIENT
  Age: 16 Year
  Sex: Male
  Weight: 70 kg

DRUGS (8)
  1. SUMATRIPTAN SUCCINATE [Suspect]
     Active Substance: SUMATRIPTAN SUCCINATE
     Indication: Obsessive-compulsive disorder
     Route: 065
  2. PAROXETINE HYDROCHLORIDE [Suspect]
     Active Substance: PAROXETINE HYDROCHLORIDE
     Indication: Obsessive-compulsive disorder
     Dosage: 10 MG, QD
  3. PAROXETINE HYDROCHLORIDE [Suspect]
     Active Substance: PAROXETINE HYDROCHLORIDE
     Dosage: 20 MG, QD
  4. PAROXETINE HYDROCHLORIDE [Suspect]
     Active Substance: PAROXETINE HYDROCHLORIDE
     Dosage: 30 MG, QD
  5. PAROXETINE HYDROCHLORIDE [Suspect]
     Active Substance: PAROXETINE HYDROCHLORIDE
     Dosage: 40 MG, QD
  6. PAXIL [Suspect]
     Active Substance: PAROXETINE HYDROCHLORIDE
     Indication: Product used for unknown indication
     Route: 065
  7. CYAMEMAZINE [Suspect]
     Active Substance: CYAMEMAZINE
     Indication: Product used for unknown indication
  8. CYAMEMAZINE [Suspect]
     Active Substance: CYAMEMAZINE

REACTIONS (31)
  - Completed suicide [Fatal]
  - Suicide attempt [Unknown]
  - Suicidal ideation [Unknown]
  - Loss of consciousness [Unknown]
  - Mental impairment [Unknown]
  - Cognitive disorder [Not Recovered/Not Resolved]
  - Aggression [Not Recovered/Not Resolved]
  - Sleep disorder [Not Recovered/Not Resolved]
  - Depression [Unknown]
  - Aphasia [Unknown]
  - Affective disorder [Not Recovered/Not Resolved]
  - Affect lability [Not Recovered/Not Resolved]
  - Disinhibition [Not Recovered/Not Resolved]
  - Judgement impaired [Not Recovered/Not Resolved]
  - Irritability [Not Recovered/Not Resolved]
  - Dissociation [Not Recovered/Not Resolved]
  - Condition aggravated [Unknown]
  - Anxiety [Unknown]
  - Fatigue [Unknown]
  - Cyclothymic disorder [Unknown]
  - Mood altered [Unknown]
  - Emotional distress [Unknown]
  - Personality disorder [Unknown]
  - Abnormal behaviour [Unknown]
  - Catatonia [Unknown]
  - Intrusive thoughts [Unknown]
  - Obsessive-compulsive disorder [Unknown]
  - Anger [Unknown]
  - Mood swings [Unknown]
  - Product prescribing issue [Unknown]
  - Product use issue [Unknown]

NARRATIVE: CASE EVENT DATE: 20210910
